FAERS Safety Report 9796406 (Version 4)
Quarter: 2014Q1

REPORT INFORMATION
  Report Type: Spontaneous
  Country: JP (occurrence: JP)
  Receive Date: 20140103
  Receipt Date: 20140220
  Transmission Date: 20141002
  Serious: Yes (Hospitalization, Other)
  Sender: FDA-Public Use
  Company Number: JP-BRISTOL-MYERS SQUIBB COMPANY-19960939

PATIENT
  Age: 49 Year
  Sex: Male

DRUGS (5)
  1. ERBITUX SOLN FOR INF 5MG/ML [Suspect]
     Indication: COLORECTAL CANCER
     Dosage: NO OF COURSE-8
     Route: 041
  2. OXALIPLATIN [Suspect]
     Indication: COLORECTAL CANCER
     Route: 041
  3. CORTICOSTEROID [Concomitant]
     Indication: COLORECTAL CANCER
  4. FLUOROURACIL [Concomitant]
     Indication: COLORECTAL CANCER
     Route: 041
  5. CALCIUM FOLINATE [Concomitant]
     Indication: COLORECTAL CANCER
     Route: 041

REACTIONS (2)
  - Rhabdomyolysis [Unknown]
  - Hyperglycaemia [Recovering/Resolving]
